FAERS Safety Report 7590683-X (Version None)
Quarter: 2011Q3

REPORT INFORMATION
  Report Type: 
  Country: None (occurrence: None)
  Receive Date: 20110705
  Receipt Date: 20110407
  Transmission Date: 20111222
  Serious: No
  Sender: FDA-Public Use
  Company Number: US-ASTRAZENECA-2011SE20187

PATIENT
  Age: 3 Year
  Sex: Male

DRUGS (1)
  1. NEXIUM [Suspect]
     Route: 048

REACTIONS (1)
  - CONDITION AGGRAVATED [None]
